FAERS Safety Report 6765855-4 (Version None)
Quarter: 2010Q2

REPORT INFORMATION
  Report Type: 
  Country: None (occurrence: None)
  Receive Date: 20100611
  Receipt Date: 20100602
  Transmission Date: 20101027
  Serious: Yes (Other)
  Sender: FDA-Public Use
  Company Number: US-B.I. PHARMACEUTICALS,INC./RIDGEFIELD-2009-BP-09591BP

PATIENT
  Sex: Male
  Weight: 92.99 kg

DRUGS (1)
  1. MIRAPEX [Suspect]
     Indication: RESTLESS LEGS SYNDROME
     Dates: start: 20060101, end: 20090601

REACTIONS (16)
  - DIZZINESS [None]
  - ECCHYMOSIS [None]
  - FACIAL BONES FRACTURE [None]
  - HEADACHE [None]
  - HYPERSEXUALITY [None]
  - HYPERTENSION [None]
  - JOINT SWELLING [None]
  - LOSS OF CONSCIOUSNESS [None]
  - OBSESSIVE-COMPULSIVE DISORDER [None]
  - OEDEMA PERIPHERAL [None]
  - PAIN [None]
  - PATHOLOGICAL GAMBLING [None]
  - SKIN LACERATION [None]
  - SOMNAMBULISM [None]
  - SOMNOLENCE [None]
  - SYNCOPE [None]
